FAERS Safety Report 24000156 (Version 1)
Quarter: 2024Q2

REPORT INFORMATION
  Report Type: Report from Study
  Country: US (occurrence: US)
  Receive Date: 20240621
  Receipt Date: 20240621
  Transmission Date: 20240716
  Serious: Yes (Hospitalization)
  Sender: FDA-Public Use
  Company Number: US-ROCHE-10000000433

PATIENT

DRUGS (2)
  1. XOLAIR [Suspect]
     Active Substance: OMALIZUMAB
     Indication: Product used for unknown indication
     Route: 065
     Dates: start: 20240218
  2. DAPSONE [Concomitant]
     Active Substance: DAPSONE

REACTIONS (7)
  - Urticaria [Unknown]
  - Neuralgia [Unknown]
  - Pyrexia [Unknown]
  - Chills [Unknown]
  - Asthenia [Unknown]
  - Hepatic enzyme increased [Unknown]
  - Inflammation [Unknown]

NARRATIVE: CASE EVENT DATE: 20240301
